FAERS Safety Report 25508087 (Version 1)
Quarter: 2025Q3

REPORT INFORMATION
  Report Type: Report from Study
  Country: ZA (occurrence: ZA)
  Receive Date: 20250703
  Receipt Date: 20250703
  Transmission Date: 20251020
  Serious: Yes (Hospitalization)
  Sender: ABBVIE
  Company Number: ZA-ABBVIE-6123576

PATIENT
  Age: 72 Year
  Sex: Female

DRUGS (2)
  1. HUMIRA [Suspect]
     Active Substance: ADALIMUMAB
     Indication: Ankylosing spondylitis
     Dosage: FORM STRENGTH: 40 MG
     Route: 058
     Dates: start: 20240902
  2. PENTASA [Concomitant]
     Active Substance: MESALAMINE
     Indication: Colitis ulcerative
     Route: 054

REACTIONS (2)
  - Hip arthroplasty [Not Recovered/Not Resolved]
  - Osteoarthritis [Not Recovered/Not Resolved]
